FAERS Safety Report 8499731-6 (Version None)
Quarter: 2012Q3

REPORT INFORMATION
  Report Type: 
  Country: None (occurrence: None)
  Receive Date: 20120710
  Receipt Date: 20120629
  Transmission Date: 20120928
  Serious: Yes (Life-Threatening, Hospitalization)
  Sender: FDA-Public Use
  Company Number: SI-JNJFOC-20110712169

PATIENT
  Sex: Male

DRUGS (10)
  1. CERSON [Concomitant]
  2. CIPROFLOXACIN [Concomitant]
  3. ULTOP [Concomitant]
  4. XARELTO [Suspect]
     Indication: THROMBOSIS PROPHYLAXIS
     Route: 065
     Dates: start: 20110104, end: 20110114
  5. KETOPROFEN [Concomitant]
  6. ALLOPURINOL [Concomitant]
  7. FERROUS SULFATE TAB [Concomitant]
  8. CRESTOR [Concomitant]
  9. TRAMADOL HCL [Concomitant]
  10. ENAP HL [Concomitant]

REACTIONS (2)
  - GASTROINTESTINAL HAEMORRHAGE [None]
  - CARDIAC TAMPONADE [None]
